FAERS Safety Report 7761555-2 (Version None)
Quarter: 2011Q3

REPORT INFORMATION
  Report Type: 
  Country: None (occurrence: None)
  Receive Date: 20110920
  Receipt Date: 20110906
  Transmission Date: 20111222
  Serious: Yes (Disabling)
  Sender: FDA-Public Use
  Company Number: GB-RANBAXY-2009RR-26257

PATIENT
  Age: 75 Year
  Sex: Male

DRUGS (9)
  1. SIMVASTATIN [Suspect]
     Indication: CARDIOVASCULAR DISORDER
     Dosage: 40 MG, UNK
     Route: 048
     Dates: start: 20060203, end: 20090713
  2. FUROSEMIDE [Suspect]
     Indication: CARDIOVASCULAR DISORDER
     Dosage: 40 MG, UNK
     Route: 048
     Dates: start: 20050817, end: 20090713
  3. ZIMOVANE [Suspect]
     Indication: INSOMNIA
     Dosage: UNK
     Route: 065
     Dates: start: 20050114
  4. IRBESARTAN [Suspect]
     Indication: CARDIOVASCULAR DISORDER
     Dosage: 75 MG, UNK
     Route: 048
     Dates: start: 20060203
  5. RABEPRAZOLE SODIUM [Suspect]
     Indication: PRODUCT USED FOR UNKNOWN INDICATION
     Dosage: 20 MG, UNK
     Route: 048
     Dates: start: 20060518, end: 20090708
  6. CARVEDILOL [Suspect]
     Indication: CARDIOVASCULAR DISORDER
     Dosage: 12.5 MG, UNK
     Route: 048
     Dates: start: 20081021, end: 20090710
  7. AMLODIPINE [Suspect]
     Indication: CARDIOVASCULAR DISORDER
     Dosage: 5 MG, UNK
     Route: 048
     Dates: start: 20050817
  8. FERROUS SULFATE TAB [Concomitant]
     Indication: PRODUCT USED FOR UNKNOWN INDICATION
     Dosage: 200 MG, UNK
     Route: 065
  9. ACETAMINPHEN AND CODEINE PHOSPHATE [Suspect]
     Indication: PAIN
     Dosage: UNK
     Route: 048
     Dates: start: 20070718, end: 20090306

REACTIONS (2)
  - ANGIOEDEMA [None]
  - SWOLLEN TONGUE [None]
